FAERS Safety Report 9585431 (Version 1)
Quarter: 2013Q4

REPORT INFORMATION
  Report Type: Spontaneous
  Country: US (occurrence: US)
  Receive Date: 20131003
  Receipt Date: 20131003
  Transmission Date: 20140711
  Serious: Yes (Other)
  Sender: FDA-Public Use
  Company Number: US-AMGEN-USASP2013068022

PATIENT
  Age: 84 Year
  Sex: Female

DRUGS (1)
  1. PROLIA [Suspect]
     Indication: PRODUCT USED FOR UNKNOWN INDICATION
     Dosage: UNK
     Route: 065
     Dates: start: 2012

REACTIONS (7)
  - Parkinson^s disease [Unknown]
  - Tooth disorder [Unknown]
  - Ear pain [Unknown]
  - Toothache [Unknown]
  - Pain in jaw [Unknown]
  - Malocclusion [Not Recovered/Not Resolved]
  - Tongue biting [Unknown]
